FAERS Safety Report 19359337 (Version 1)
Quarter: 2021Q2

REPORT INFORMATION
  Report Type: Spontaneous
  Country: US (occurrence: US)
  Receive Date: 20210601
  Receipt Date: 20210601
  Transmission Date: 20210717
  Serious: Yes (Hospitalization, Other)
  Sender: FDA-Public Use
  Company Number: US-ELI_LILLY_AND_COMPANY-US202105011162

PATIENT
  Age: 65 Year
  Sex: Male

DRUGS (1)
  1. HUMALOG KWIKPEN [Suspect]
     Active Substance: INSULIN LISPRO
     Indication: PRODUCT USED FOR UNKNOWN INDICATION
     Dosage: UNK UNK, UNKNOWN
     Route: 065

REACTIONS (10)
  - Myocardial infarction [Unknown]
  - Lung neoplasm malignant [Unknown]
  - Bladder cancer [Unknown]
  - Appendicitis [Unknown]
  - Confusional state [Unknown]
  - Depression [Unknown]
  - Incorrect dosage administered [Unknown]
  - Loss of consciousness [Unknown]
  - Eating disorder [Unknown]
  - Blood glucose increased [Unknown]

NARRATIVE: CASE EVENT DATE: 201911
